FAERS Safety Report 7603837-0 (Version None)
Quarter: 2011Q3

REPORT INFORMATION
  Report Type: 
  Country: None (occurrence: None)
  Receive Date: 20110712
  Receipt Date: 20110705
  Transmission Date: 20111222
  Serious: Yes (Death, Hospitalization)
  Sender: FDA-Public Use
  Company Number: NL-GLAXOSMITHKLINE-B0732309A

PATIENT
  Sex: Female

DRUGS (9)
  1. ACYCLOVIR [Suspect]
     Indication: HERPES ZOSTER
     Dosage: 800MG THREE TIMES PER DAY
     Route: 048
     Dates: start: 20110103
  2. ESOMEPRAZOLE MAGNESIUM [Concomitant]
     Dosage: 20MG PER DAY
     Route: 048
  3. ROSUVASTATINE [Concomitant]
     Dosage: 10MG PER DAY
     Route: 048
  4. HUMIRA [Concomitant]
     Route: 058
  5. ALENDRONIC ACID [Concomitant]
     Dosage: 70MG WEEKLY
     Route: 048
  6. CALCIUM CARBONATE [Concomitant]
     Route: 048
  7. PERINDOPRIL [Suspect]
     Indication: PRODUCT USED FOR UNKNOWN INDICATION
     Dosage: 4MG PER DAY
     Route: 048
  8. ACENOCOUMAROL [Concomitant]
     Route: 048
  9. PREDNISONE [Concomitant]
     Dosage: 5MG PER DAY
     Route: 048

REACTIONS (2)
  - DEATH [None]
  - RENAL TUBULAR NECROSIS [None]
